FAERS Safety Report 25239803 (Version 1)
Quarter: 2025Q2

REPORT INFORMATION
  Report Type: Report from Study
  Country: CA (occurrence: CA)
  Receive Date: 20250425
  Receipt Date: 20250425
  Transmission Date: 20250716
  Serious: Yes (Hospitalization, Other)
  Sender: ROCHE
  Company Number: CA-002147023-NVSC2024CA146121

PATIENT
  Age: 67 Year
  Sex: Male

DRUGS (6)
  1. XOLAIR [Suspect]
     Active Substance: OMALIZUMAB
     Indication: Asthma
     Dosage: 375 MG 2 WEEKS
     Route: 058
     Dates: start: 20231016
  2. XOLAIR [Suspect]
     Active Substance: OMALIZUMAB
     Dosage: 375 MG 2 WEEKS
     Route: 058
  3. XOLAIR [Suspect]
     Active Substance: OMALIZUMAB
     Route: 050
  4. XOLAIR [Suspect]
     Active Substance: OMALIZUMAB
     Route: 050
     Dates: start: 20240919
  5. XOLAIR [Suspect]
     Active Substance: OMALIZUMAB
     Dosage: 375 MG 2 WEEKS
     Route: 058
  6. ACETAMINOPHEN [Concomitant]
     Active Substance: ACETAMINOPHEN
     Indication: Product used for unknown indication
     Route: 065
     Dates: start: 202406

REACTIONS (7)
  - Haematuria [Recovered/Resolved]
  - Spinal fracture [Unknown]
  - Road traffic accident [Unknown]
  - Asthma [Unknown]
  - Therapeutic response shortened [Unknown]
  - Fall [Unknown]
  - Limb injury [Not Recovered/Not Resolved]

NARRATIVE: CASE EVENT DATE: 20240101
